FAERS Safety Report 11226159 (Version 1)
Quarter: 2015Q2

REPORT INFORMATION
  Report Type: Spontaneous
  Country: IT (occurrence: IT)
  Receive Date: 20150629
  Receipt Date: 20150629
  Transmission Date: 20150821
  Serious: Yes (Hospitalization)
  Sender: FDA-Public Use
  Company Number: IT-HOSPIRA-2683185

PATIENT
  Age: 55 Year
  Sex: Female

DRUGS (2)
  1. CAPECITABINE. [Suspect]
     Active Substance: CAPECITABINE
     Indication: COLON NEOPLASM
     Dosage: DAILY
     Route: 048
     Dates: start: 20110311, end: 20110415
  2. OXALIPLATIN. [Suspect]
     Active Substance: OXALIPLATIN
     Indication: COLON NEOPLASM
     Dosage: DAILY
     Route: 042
     Dates: start: 20110311

REACTIONS (2)
  - Paraplegia [Recovering/Resolving]
  - Cardiomyopathy [Recovering/Resolving]

NARRATIVE: CASE EVENT DATE: 20110418
